FAERS Safety Report 5788413-7 (Version None)
Quarter: 2008Q2

REPORT INFORMATION
  Report Type: 
  Country: None (occurrence: None)
  Receive Date: 20080623
  Receipt Date: 20080609
  Transmission Date: 20081010
  Serious: Yes (Death, Hospitalization)
  Sender: FDA-Public Use
  Company Number: 2008AL005192

PATIENT
  Age: 87 Year
  Sex: Female

DRUGS (7)
  1. DIGOXIN [Suspect]
     Indication: ARRHYTHMIA
     Dosage: DAILY PO
     Route: 048
  2. ARICEPT [Concomitant]
  3. FUROSEMIDE [Concomitant]
  4. COUMADIN [Concomitant]
  5. ALLOPURINOL [Concomitant]
  6. BENZOPRIL [Concomitant]
  7. ATENOLOL [Concomitant]

REACTIONS (6)
  - CEREBRAL HAEMORRHAGE [None]
  - COMA [None]
  - DISORIENTATION [None]
  - DIZZINESS [None]
  - FALL [None]
  - HEAD INJURY [None]
